FAERS Safety Report 6377430-4 (Version None)
Quarter: 2009Q3

REPORT INFORMATION
  Report Type: 
  Country: None (occurrence: None)
  Receive Date: 20090921
  Receipt Date: 20090915
  Transmission Date: 20100115
  Serious: Yes (Hospitalization)
  Sender: FDA-Public Use
  Company Number: 2009SP025043

PATIENT
  Age: 61 Year
  Sex: Male

DRUGS (6)
  1. LORATADINE [Suspect]
     Indication: PRURITUS
     Dosage: 1 DF;QD;PO
     Route: 048
     Dates: start: 20090630, end: 20090712
  2. OXACILLIN [Suspect]
     Indication: ERYSIPELAS
     Dosage: 2 GM;QD;PO
     Route: 048
     Dates: start: 20090706, end: 20090710
  3. BETADINE [Suspect]
     Indication: DRUG USE FOR UNKNOWN INDICATION
     Dosage: ; CUT
     Dates: start: 20090630, end: 20090712
  4. ARIXTRA [Suspect]
     Indication: DEEP VEIN THROMBOSIS
     Dosage: 1 DF;QD;SC
     Route: 058
     Dates: start: 20090706, end: 20090707
  5. FUCIDINE CAP [Suspect]
     Indication: SKIN LESION
     Dosage: ; CUT
     Dates: start: 20090630, end: 20090703
  6. LOCERYL (AMOROLFINE) (NO PREF. NAME) [Suspect]
     Indication: SKIN LESION
     Dosage: ; CUT
     Dates: start: 20090630, end: 20090712

REACTIONS (13)
  - BLOOD BILIRUBIN INCREASED [None]
  - BLOOD UREA INCREASED [None]
  - CHILLS [None]
  - CHOLESTASIS [None]
  - DERMATITIS BULLOUS [None]
  - EOSINOPHILIA [None]
  - ERYSIPELAS [None]
  - ERYTHEMA [None]
  - FACE OEDEMA [None]
  - HYPOCAPNIA [None]
  - RASH SCARLATINIFORM [None]
  - TOXIC SKIN ERUPTION [None]
  - WHITE BLOOD CELL COUNT INCREASED [None]
